FAERS Safety Report 4364941-6 (Version None)
Quarter: 2004Q2

REPORT INFORMATION
  Report Type: 
  Country: None (occurrence: None)
  Receive Date: 20040524
  Receipt Date: 20010125
  Transmission Date: 20050107
  Serious: Yes (Hospitalization)
  Sender: FDA-Public Use
  Company Number: PERIO-2001-0033

PATIENT
  Age: 62 Year
  Sex: Female

DRUGS (4)
  1. PERIOSTAT [Suspect]
     Indication: PERIODONTAL DISEASE
     Dosage: 20 MG, BID, PER ORAL
     Route: 048
     Dates: start: 20000601, end: 20000720
  2. PERIOSTAT [Suspect]
     Indication: PERIODONTAL DISEASE
     Dosage: 20 MG, BID, PER ORAL
     Route: 048
     Dates: start: 20001101, end: 20001201
  3. MULTIVITAMIN (MULTIVITAMINS) [Concomitant]
  4. ESTROGEN (ESTROGEN NOS) [Concomitant]

REACTIONS (2)
  - ABDOMINAL PAIN [None]
  - PYREXIA [None]
